FAERS Safety Report 9411798 (Version 1)
Quarter: 2013Q3

REPORT INFORMATION
  Report Type: Spontaneous
  Country: US (occurrence: None)
  Receive Date: 20130719
  Receipt Date: 20130719
  Transmission Date: 20140515
  Serious: Yes (Other)
  Sender: FDA-Public Use
  Company Number: None

PATIENT
  Age: 64 Year
  Sex: Male

DRUGS (1)
  1. STIVARGA [Suspect]
     Indication: COLON CANCER
     Dosage: 40 MG 80 MG QD PO
     Route: 048
     Dates: start: 20130415, end: 20130717

REACTIONS (2)
  - Palmar-plantar erythrodysaesthesia syndrome [None]
  - Blister [None]
